FAERS Safety Report 15646929 (Version 1)
Quarter: 2018Q4

REPORT INFORMATION
  Report Type: Report from Study
  Country: NL (occurrence: NL)
  Receive Date: 20181122
  Receipt Date: 20181122
  Transmission Date: 20190205
  Serious: Yes (Hospitalization)
  Sender: FDA-Public Use
  Company Number: NL-ROCHE-2215473

PATIENT
  Age: 73 Year
  Sex: Male
  Weight: 69 kg

DRUGS (5)
  1. TRASTUZUMAB. [Suspect]
     Active Substance: TRASTUZUMAB
     Indication: GASTRIC CANCER
     Dosage: DATE OF LAST DOSE (420 MG) PRIOR TO THE ADVESE EVENT: 10/MAY/2017
     Route: 042
     Dates: start: 20130828
  2. OXALIPLATIN. [Suspect]
     Active Substance: OXALIPLATIN
     Indication: GASTRIC CANCER
     Dosage: DATE OF LAST DOSE (189 MG) PRIOR TO THE ADVESE EVENT: 11/DEC/2013
     Route: 042
     Dates: start: 20130828
  3. BEVACIZUMAB. [Suspect]
     Active Substance: BEVACIZUMAB
     Indication: GASTRIC CANCER
     Dosage: DATE OF LAST DOSE (525 MG) PRIOR TO THE ADVESE EVENT: 10/MAY/2017
     Route: 042
     Dates: start: 20130828
  4. CAPECITABINE. [Suspect]
     Active Substance: CAPECITABINE
     Indication: GASTRIC CANCER
     Dosage: ON DAY 1 AND 14?DATE OF LAST DOSE (3300 MG) PRIOR TO THE ADVESE EVENT: 19/FEB/2014
     Route: 048
     Dates: start: 20130828
  5. DOCETAXEL. [Suspect]
     Active Substance: DOCETAXEL
     Indication: GASTRIC CANCER
     Dosage: DATE OF LAST DOSE (94 MG) PRIOR TO THE ADVESE EVENT: 11/DEC/2013
     Route: 042
     Dates: start: 20130828

REACTIONS (1)
  - Bursitis [Recovered/Resolved]

NARRATIVE: CASE EVENT DATE: 20170526
